FAERS Safety Report 4385664-3 (Version None)
Quarter: 2004Q2

REPORT INFORMATION
  Report Type: 
  Country: None (occurrence: None)
  Receive Date: 20040625
  Receipt Date: 20040625
  Transmission Date: 20050107
  Serious: Yes (Hospitalization)
  Sender: FDA-Public Use
  Company Number: None

PATIENT
  Sex: Male
  Weight: 65.318 kg

DRUGS (12)
  1. IRESSA [Suspect]
     Indication: OROPHARYNGEAL CANCER STAGE UNSPECIFIED
     Dosage: 250 MG QD
     Dates: start: 20040503, end: 20040623
  2. CISPLATIN [Suspect]
     Indication: OROPHARYNGEAL CANCER STAGE UNSPECIFIED
     Dosage: 60 MG/M2 Q 3 WEEKS
     Dates: start: 20040503, end: 20040623
  3. NORVASC [Concomitant]
  4. REGLAN [Concomitant]
  5. COLACE [Concomitant]
  6. DIGOXIN [Concomitant]
  7. FENTANYL [Concomitant]
  8. COREG [Concomitant]
  9. VASOTEC [Concomitant]
  10. PROSCAR [Concomitant]
  11. FLOMAX [Concomitant]
  12. DILAUDID [Concomitant]

REACTIONS (3)
  - ASTHENIA [None]
  - BLOOD CREATININE ABNORMAL [None]
  - DEHYDRATION [None]
